FAERS Safety Report 7888660-4 (Version None)
Quarter: 2011Q4

REPORT INFORMATION
  Report Type: 
  Country: None (occurrence: None)
  Receive Date: 20111101
  Receipt Date: 20111017
  Transmission Date: 20120403
  Serious: Yes (Hospitalization)
  Sender: FDA-Public Use
  Company Number: 2011MA015279

PATIENT
  Age: 58 Year
  Sex: Female

DRUGS (2)
  1. TEMAZEPAM [Suspect]
     Indication: INSOMNIA
     Dosage: 20 MG;HS
  2. MIRTAZAPINE [Concomitant]

REACTIONS (5)
  - WITHDRAWAL SYNDROME [None]
  - PSYCHOTIC DISORDER [None]
  - HALLUCINATIONS, MIXED [None]
  - HALLUCINATION, OLFACTORY [None]
  - PERSECUTORY DELUSION [None]
